FAERS Safety Report 24814457 (Version 3)
Quarter: 2025Q1

REPORT INFORMATION
  Report Type: Spontaneous
  Country: ES (occurrence: ES)
  Receive Date: 20250107
  Receipt Date: 20250304
  Transmission Date: 20250409
  Serious: Yes (Death, Hospitalization, Other)
  Sender: SANDOZ
  Company Number: ES-HIKMA PHARMACEUTICALS USA INC.-ES-H14001-24-11981

PATIENT
  Age: 67 Year
  Sex: Male
  Weight: 92.7 kg

DRUGS (15)
  1. CARBOPLATIN [Suspect]
     Active Substance: CARBOPLATIN
     Indication: Non-small cell lung cancer
     Route: 042
     Dates: start: 20241018, end: 20241018
  2. CARBOPLATIN [Suspect]
     Active Substance: CARBOPLATIN
     Route: 042
     Dates: start: 20241107, end: 20241107
  3. CARBOPLATIN [Suspect]
     Active Substance: CARBOPLATIN
     Route: 042
     Dates: start: 20241128, end: 20241128
  4. PEMETREXED [Suspect]
     Active Substance: PEMETREXED
     Indication: Non-small cell lung cancer
     Route: 042
     Dates: start: 20241018, end: 20241018
  5. PEMETREXED [Suspect]
     Active Substance: PEMETREXED
     Route: 042
     Dates: start: 20241107, end: 20241107
  6. PEMETREXED [Suspect]
     Active Substance: PEMETREXED
     Route: 042
     Dates: start: 20241128, end: 20241128
  7. VUDALIMAB [Suspect]
     Active Substance: VUDALIMAB
     Indication: Non-small cell lung cancer
     Dosage: 500 MILLIGRAM, 3W
     Route: 042
     Dates: start: 20241018, end: 20241018
  8. VUDALIMAB [Suspect]
     Active Substance: VUDALIMAB
     Dosage: 500 MILLIGRAM, 3W
     Route: 042
     Dates: start: 20241107, end: 20241107
  9. VUDALIMAB [Suspect]
     Active Substance: VUDALIMAB
     Dosage: 500 MILLIGRAM, 3W
     Route: 042
     Dates: start: 20241128, end: 20241128
  10. FOLIC ACID [Concomitant]
     Active Substance: FOLIC ACID
     Indication: Product used for unknown indication
     Route: 065
     Dates: start: 20240905
  11. APIXABAN [Concomitant]
     Active Substance: APIXABAN
     Indication: Product used for unknown indication
     Route: 065
     Dates: start: 2022
  12. FLUTICASONE FUROATE\UMECLIDINIUM BROMIDE\VILANTEROL TRIFENATATE [Concomitant]
     Active Substance: FLUTICASONE FUROATE\UMECLIDINIUM BROMIDE\VILANTEROL TRIFENATATE
     Indication: Product used for unknown indication
     Route: 065
     Dates: start: 202404
  13. MORPHINE [Concomitant]
     Active Substance: MORPHINE
     Indication: Product used for unknown indication
     Route: 065
     Dates: start: 20241029, end: 20241202
  14. Optovit e [Concomitant]
     Indication: Product used for unknown indication
     Route: 065
     Dates: start: 20240905
  15. TAMSULOSIN [Concomitant]
     Active Substance: TAMSULOSIN
     Indication: Product used for unknown indication
     Route: 065
     Dates: start: 20240619

REACTIONS (11)
  - Intestinal ischaemia [Fatal]
  - Abdominal distension [Unknown]
  - Condition aggravated [Unknown]
  - Intestinal dilatation [Unknown]
  - Ischaemia [Unknown]
  - Angiopathy [Unknown]
  - Gastrointestinal wall thinning [Unknown]
  - C-reactive protein increased [Unknown]
  - Abdominal pain [Unknown]
  - Nausea [Unknown]
  - Pain [Unknown]

NARRATIVE: CASE EVENT DATE: 20241129
